FAERS Safety Report 10655243 (Version 5)
Quarter: 2016Q4

REPORT INFORMATION
  Report Type: Spontaneous
  Country: JP (occurrence: JP)
  Receive Date: 20141216
  Receipt Date: 20161215
  Transmission Date: 20170206
  Serious: Yes (Death, Disabling, Other)
  Sender: FDA-Public Use
  Company Number: JP-OTSUKA-JP-2014-19653

PATIENT
  Age: 91 Year
  Sex: Male

DRUGS (4)
  1. GLUCOSE [Concomitant]
     Active Substance: DEXTROSE
     Indication: PRODUCT USED FOR UNKNOWN INDICATION
     Dosage: UNK
     Route: 042
  2. SAMSCA [Suspect]
     Active Substance: TOLVAPTAN
     Indication: CARDIAC FAILURE CHRONIC
     Dosage: 3.75 MG, QD
     Route: 048
     Dates: start: 20141127, end: 20141201
  3. LASIX M [Concomitant]
     Active Substance: FUROSEMIDE
     Indication: PRODUCT USED FOR UNKNOWN INDICATION
     Dosage: 60 MG, QD
     Route: 048
  4. RECOMODULIN [Concomitant]
     Active Substance: THROMBOMODULIN ALFA
     Indication: PRODUCT USED FOR UNKNOWN INDICATION
     Dosage: UNK
     Route: 041

REACTIONS (4)
  - Hypernatraemia [Recovered/Resolved with Sequelae]
  - Dehydration [Unknown]
  - Loss of consciousness [Not Recovered/Not Resolved]
  - Cardiac failure chronic [Fatal]

NARRATIVE: CASE EVENT DATE: 20141201
